FAERS Safety Report 15939743 (Version 1)
Quarter: 2019Q1

REPORT INFORMATION
  Report Type: Spontaneous
  Country: ES (occurrence: ES)
  Receive Date: 20190208
  Receipt Date: 20190208
  Transmission Date: 20190417
  Serious: Yes (Other)
  Sender: FDA-Public Use
  Company Number: ES-PFIZER INC-2019048182

PATIENT
  Age: 71 Year
  Sex: Female

DRUGS (2)
  1. OXALIPLATIN. [Suspect]
     Active Substance: OXALIPLATIN
     Dosage: UNK
     Route: 042
     Dates: start: 2018
  2. FLUOROURACIL. [Suspect]
     Active Substance: FLUOROURACIL
     Dosage: UNK
     Route: 042
     Dates: start: 2018

REACTIONS (5)
  - Vomiting [Unknown]
  - Syncope [Unknown]
  - Nausea [Unknown]
  - Hypotension [Unknown]
  - Neutropenia [Unknown]

NARRATIVE: CASE EVENT DATE: 20181217
